FAERS Safety Report 4620303-5 (Version None)
Quarter: 2005Q1

REPORT INFORMATION
  Report Type: 
  Country: None (occurrence: None)
  Receive Date: 20050324
  Receipt Date: 20050317
  Transmission Date: 20050727
  Serious: Yes (Hospitalization)
  Sender: FDA-Public Use
  Company Number: ZONI002131

PATIENT
  Age: 74 Year
  Sex: Male

DRUGS (2)
  1. EXCEGRAN (ZONISAMIDE) [Suspect]
     Indication: EPILEPSY
     Dosage: ORAL
     Route: 048
     Dates: start: 20050201
  2. TAMIFLU [Concomitant]

REACTIONS (1)
  - STEVENS-JOHNSON SYNDROME [None]
